FAERS Safety Report 6231627-2 (Version None)
Quarter: 2009Q2

REPORT INFORMATION
  Report Type: 
  Country: None (occurrence: None)
  Receive Date: 20090616
  Receipt Date: 20090610
  Transmission Date: 20091009
  Serious: Yes (Life-Threatening, Other)
  Sender: FDA-Public Use
  Company Number: FR-BAYER-200922907GPV

PATIENT
  Age: 51 Year
  Sex: Male

DRUGS (8)
  1. CIFLOX [Suspect]
     Indication: ENCEPHALITIS
     Route: 042
     Dates: start: 20090118, end: 20090126
  2. CLAFORAN [Suspect]
     Indication: ENCEPHALITIS
     Route: 042
     Dates: start: 20090107, end: 20090118
  3. VANCOMYCIN HCL [Suspect]
     Indication: ENCEPHALITIS
     Route: 042
     Dates: start: 20090107, end: 20090118
  4. ZYVOXID [Suspect]
     Indication: ENCEPHALITIS
     Route: 042
     Dates: start: 20090118, end: 20090126
  5. TAZOCILLINE [Concomitant]
     Indication: AORTITIS
     Route: 042
  6. AMIKLIN [Concomitant]
     Indication: AORTITIS
     Route: 042
  7. VANCOMYCIN HCL [Concomitant]
     Indication: INFLAMMATION
     Route: 042
  8. TRIFLUCAN [Concomitant]
     Indication: CANDIDIASIS
     Route: 042

REACTIONS (6)
  - ABDOMINAL OPERATION [None]
  - ANAEMIA [None]
  - INFECTION [None]
  - MYCOTIC ANEURYSM [None]
  - RENAL VESSEL DISORDER [None]
  - RETROPERITONEAL HAEMORRHAGE [None]
